FAERS Safety Report 21369560 (Version 1)
Quarter: 2022Q3

REPORT INFORMATION
  Report Type: Spontaneous
  Country: US (occurrence: US)
  Receive Date: 20220923
  Receipt Date: 20220923
  Transmission Date: 20221027
  Serious: No
  Sender: FDA-Public Use
  Company Number: US-MYLANLABS-2022M1095123

PATIENT
  Age: 13 Year
  Sex: Male

DRUGS (1)
  1. SEMGLEE (INSULIN GLARGINE-YFGN) [Suspect]
     Active Substance: INSULIN GLARGINE-YFGN
     Indication: Type 1 diabetes mellitus
     Dosage: 50 INTERNATIONAL UNIT, QD
     Route: 058

REACTIONS (2)
  - Lipohypertrophy [Unknown]
  - Device issue [Unknown]

NARRATIVE: CASE EVENT DATE: 20220903
